FAERS Safety Report 9379382 (Version 2)
Quarter: 2013Q3

REPORT INFORMATION
  Report Type: Spontaneous
  Country: US (occurrence: US)
  Receive Date: 20130702
  Receipt Date: 20130708
  Transmission Date: 20140515
  Serious: Yes (Other)
  Sender: FDA-Public Use
  Company Number: US-AMGEN-USASP2013041914

PATIENT
  Age: 68 Year
  Sex: Female
  Weight: 71.66 kg

DRUGS (6)
  1. PROLIA [Suspect]
     Indication: OSTEOPOROSIS POSTMENOPAUSAL
     Dosage: 60 MG, Q6MO
     Route: 058
     Dates: start: 20130610
  2. BABY ASPIRIN [Concomitant]
     Dosage: 81 MG, QOD
  3. VITAMIN D                          /00107901/ [Concomitant]
     Dosage: 2000, QD
  4. PLAVIX [Concomitant]
  5. ANTIHYPERTENSIVES [Concomitant]
  6. CALCIUM [Concomitant]
     Dosage: 1200 MG, QD

REACTIONS (9)
  - Encephalitis [Unknown]
  - Joint stiffness [Recovered/Resolved]
  - Sinusitis [Unknown]
  - Pain in jaw [Not Recovered/Not Resolved]
  - Balance disorder [Not Recovered/Not Resolved]
  - Fatigue [Not Recovered/Not Resolved]
  - Dizziness [Recovered/Resolved]
  - Abdominal discomfort [Recovered/Resolved]
  - Migraine with aura [Recovered/Resolved]
